FAERS Safety Report 5960513-8 (Version None)
Quarter: 2008Q4

REPORT INFORMATION
  Report Type: 
  Country: None (occurrence: None)
  Receive Date: 20081120
  Receipt Date: 20080228
  Transmission Date: 20090506
  Serious: No
  Sender: FDA-Public Use
  Company Number: US-ABBOTT-08P-163-0440393-00

PATIENT
  Age: 14 Year
  Sex: Male

DRUGS (2)
  1. CLARITHROMYCIN [Suspect]
     Indication: BRONCHITIS
  2. CLARITHROMYCIN [Suspect]
     Indication: SINUSITIS

REACTIONS (1)
  - RASH [None]
